FAERS Safety Report 9270933 (Version 4)
Quarter: 2013Q3

REPORT INFORMATION
  Report Type: Spontaneous
  Country: US (occurrence: US)
  Receive Date: 20130506
  Receipt Date: 20130808
  Transmission Date: 20140515
  Serious: No
  Sender: FDA-Public Use
  Company Number: US-009507513-1305USA000663

PATIENT
  Age: 62 Year
  Sex: Female
  Weight: 73.16 kg

DRUGS (17)
  1. PEGINTRON [Suspect]
     Dosage: INJECT 96 MICROGRAM (0.4ML), QW, REDIPEN
     Route: 058
     Dates: start: 20130426
  2. VICTRELIS [Suspect]
     Dosage: 800 MG, TID
     Route: 048
     Dates: start: 20130527
  3. RIBAPAK [Suspect]
     Dosage: 1200/DAY
  4. RIBAPAK [Suspect]
     Dosage: 1000 MG/DAY
  5. RIBAPAK [Suspect]
     Dosage: 800 MG/DAY
  6. RIBAPAK [Suspect]
     Dosage: 600 MG/DAY
  7. LOSARTAN POTASSIUM [Concomitant]
  8. OXYBUTYNIN [Concomitant]
  9. DEXILANT [Concomitant]
  10. PILOCARPINE [Concomitant]
     Dosage: SOLUTION
     Route: 047
  11. BENADRYL [Concomitant]
     Dosage: 1-0.1%
  12. BENADRYL [Concomitant]
  13. VITAMIN E [Concomitant]
     Dosage: 1000 UNIT
  14. VITAMIN D (UNSPECIFIED) [Concomitant]
     Dosage: 1000 UNIT
  15. ALLEGRA [Concomitant]
  16. ASTEPRO [Concomitant]
     Dosage: SPRAY
  17. HEMAX (EPOETIN ALFA) [Concomitant]

REACTIONS (26)
  - Eye swelling [Recovering/Resolving]
  - Body temperature increased [Recovering/Resolving]
  - Chills [Recovering/Resolving]
  - Rash [Recovering/Resolving]
  - Rash [Recovering/Resolving]
  - Epistaxis [Unknown]
  - Dyspnoea [Unknown]
  - Headache [Unknown]
  - Fatigue [Unknown]
  - Pyrexia [Unknown]
  - Dysgeusia [Unknown]
  - Fatigue [Unknown]
  - Dyspnoea exertional [Unknown]
  - Red blood cell count decreased [Unknown]
  - Anaemia [Unknown]
  - Platelet count decreased [Unknown]
  - Weight decreased [Unknown]
  - Nausea [Unknown]
  - Vomiting [Unknown]
  - Dysgeusia [Unknown]
  - Stomatitis [Unknown]
  - Tongue discolouration [Unknown]
  - Rash [Unknown]
  - Pruritus [Unknown]
  - Generalised erythema [Recovered/Resolved]
  - Influenza like illness [Unknown]
